FAERS Safety Report 7437410-4 (Version None)
Quarter: 2011Q2

REPORT INFORMATION
  Report Type: 
  Country: None (occurrence: None)
  Receive Date: 20110426
  Receipt Date: 20110414
  Transmission Date: 20111010
  Serious: Yes (Life-Threatening, Other)
  Sender: FDA-Public Use
  Company Number: JP-SANOFI-AVENTIS-2011SA010221

PATIENT
  Age: 71 Year
  Sex: Male
  Weight: 58 kg

DRUGS (14)
  1. ELPLAT [Suspect]
     Indication: COLON CANCER
     Route: 041
     Dates: start: 20050915, end: 20050915
  2. ELPLAT [Suspect]
     Route: 041
     Dates: start: 20051201, end: 20051201
  3. FLUOROURACIL [Concomitant]
     Route: 041
     Dates: start: 20050915, end: 20050916
  4. FLUOROURACIL [Concomitant]
     Route: 040
     Dates: start: 20051118, end: 20051118
  5. PRIMPERAN TAB [Concomitant]
     Indication: PREMEDICATION
     Route: 041
     Dates: start: 20050915, end: 20051215
  6. ELPLAT [Suspect]
     Route: 041
     Dates: start: 20051215, end: 20051215
  7. CALCIUM LEVOFOLINATE [Suspect]
     Route: 041
     Dates: start: 20051215, end: 20051215
  8. KYTRIL [Concomitant]
     Indication: PREMEDICATION
     Route: 041
     Dates: start: 20050915, end: 20051215
  9. FLUOROURACIL [Concomitant]
     Indication: COLON CANCER
     Route: 040
     Dates: start: 20050915, end: 20050915
  10. DEXAMETHASONE [Concomitant]
     Indication: PREMEDICATION
     Route: 041
     Dates: start: 20050915, end: 20051215
  11. ELPLAT [Suspect]
     Route: 041
     Dates: start: 20051117, end: 20051117
  12. CALCIUM LEVOFOLINATE [Suspect]
     Indication: COLON CANCER
     Route: 041
     Dates: start: 20050915, end: 20050915
  13. CALCIUM LEVOFOLINATE [Suspect]
     Route: 041
     Dates: start: 20051201, end: 20051201
  14. FLUOROURACIL [Concomitant]
     Route: 041
     Dates: start: 20051118, end: 20051119

REACTIONS (1)
  - ANGINA PECTORIS [None]
